FAERS Safety Report 7381078-2 (Version None)
Quarter: 2011Q1

REPORT INFORMATION
  Report Type: 
  Country: None (occurrence: None)
  Receive Date: 20110329
  Receipt Date: 20110321
  Transmission Date: 20110831
  Serious: Yes (Other)
  Sender: FDA-Public Use
  Company Number: US-TEVA-272619USA

PATIENT
  Sex: Male

DRUGS (2)
  1. METOCLOPRAMIDE [Suspect]
  2. METOCLOPRAMIDE [Suspect]

REACTIONS (7)
  - DYSTONIA [None]
  - TREMOR [None]
  - TARDIVE DYSKINESIA [None]
  - HEMIPLEGIA [None]
  - DYSKINESIA [None]
  - TORTICOLLIS [None]
  - EXTRAPYRAMIDAL DISORDER [None]
